FAERS Safety Report 7587133-6 (Version None)
Quarter: 2011Q3

REPORT INFORMATION
  Report Type: 
  Country: None (occurrence: None)
  Receive Date: 20110701
  Receipt Date: 20110628
  Transmission Date: 20111222
  Serious: Yes (Congenital Anomaly, Other)
  Sender: FDA-Public Use
  Company Number: FR-BRISTOL-MYERS SQUIBB COMPANY-15859713

PATIENT
  Age: 27 Year
  Sex: Female

DRUGS (2)
  1. ABILIFY [Suspect]
     Indication: SCHIZOPHRENIA
     Dosage: FOR SOME TIME
     Dates: start: 20110101, end: 20110401
  2. XANAX [Suspect]
     Dates: end: 20110401

REACTIONS (3)
  - TWIN PREGNANCY [None]
  - SELECTIVE ABORTION [None]
  - LIMB REDUCTION DEFECT [None]
